FAERS Safety Report 10241144 (Version 1)
Quarter: 2014Q2

REPORT INFORMATION
  Report Type: Spontaneous
  Country: US (occurrence: US)
  Receive Date: 20140617
  Receipt Date: 20140617
  Transmission Date: 20141212
  Serious: No
  Sender: FDA-Public Use
  Company Number: US-PFIZER INC-2014164086

PATIENT
  Age: 78 Year
  Sex: Female
  Weight: 97.51 kg

DRUGS (6)
  1. CELEBREX [Suspect]
     Indication: BURSITIS
     Dosage: 200 MG, DAILY
     Dates: start: 201406, end: 201406
  2. TOPROL [Concomitant]
     Indication: HYPERTENSION
     Dosage: UNK
  3. SIMVASTATIN [Concomitant]
     Indication: BLOOD CHOLESTEROL ABNORMAL
     Dosage: UNK
  4. AMLODIPINE [Concomitant]
     Dosage: UNK
  5. LISINOPRIL [Concomitant]
     Dosage: UNK
  6. BABY ASPIRIN [Concomitant]
     Dosage: UNK

REACTIONS (1)
  - Pruritus [Unknown]
